FAERS Safety Report 21841478 (Version 5)
Quarter: 2025Q2

REPORT INFORMATION
  Report Type: Report from Study
  Country: US (occurrence: US)
  Receive Date: 20230110
  Receipt Date: 20250523
  Transmission Date: 20250716
  Serious: Yes (Hospitalization, Other)
  Sender: TAKEDA
  Company Number: US-TAKEDA-2022TUS036892

PATIENT
  Age: 61 Year
  Sex: Female

DRUGS (4)
  1. HUMAN IMMUNOGLOBULIN G [Suspect]
     Active Substance: HUMAN IMMUNOGLOBULIN G
     Indication: Primary immunodeficiency syndrome
     Dosage: 23 GRAM, Q2WEEKS
  2. HUMAN IMMUNOGLOBULIN G [Suspect]
     Active Substance: HUMAN IMMUNOGLOBULIN G
     Indication: Secondary immunodeficiency
     Dosage: 23 GRAM, 1/WEEK
  3. HUMAN IMMUNOGLOBULIN G [Suspect]
     Active Substance: HUMAN IMMUNOGLOBULIN G
  4. HUMAN IMMUNOGLOBULIN G [Suspect]
     Active Substance: HUMAN IMMUNOGLOBULIN G
     Dosage: 12 GRAM, 2/WEEK

REACTIONS (14)
  - Thyroid cancer [Unknown]
  - Splenomegaly [Unknown]
  - Full blood count abnormal [Unknown]
  - Pneumonia [Unknown]
  - COVID-19 [Unknown]
  - Urinary tract infection [Unknown]
  - Abdominal mass [Unknown]
  - Post-acute COVID-19 syndrome [Recovering/Resolving]
  - Sinusitis [Unknown]
  - Flushing [Unknown]
  - Chills [Unknown]
  - Infusion site erythema [Unknown]
  - Infusion site swelling [Unknown]
  - Urticaria [Recovered/Resolved]

NARRATIVE: CASE EVENT DATE: 20240808
